FAERS Safety Report 9994589 (Version 2)
Quarter: 2014Q1

REPORT INFORMATION
  Report Type: Spontaneous
  Country: FR (occurrence: FR)
  Receive Date: 20140311
  Receipt Date: 20140311
  Transmission Date: 20141002
  Serious: Yes (Other)
  Sender: FDA-Public Use
  Company Number: FR-ASTRAZENECA-2014SE09173

PATIENT
  Age: 82 Year
  Sex: Male

DRUGS (8)
  1. ZOLADEX [Suspect]
     Indication: PSYCHOSEXUAL DISORDER
     Route: 058
     Dates: start: 2013
  2. XATRAL [Concomitant]
     Indication: BENIGN PROSTATIC HYPERPLASIA
     Route: 048
     Dates: start: 20120119
  3. LOXEN [Concomitant]
     Indication: HYPERTENSION
     Route: 048
     Dates: start: 20090618
  4. SERESTA [Concomitant]
     Indication: ANXIETY
     Route: 065
     Dates: start: 20130226
  5. MIANSERINE [Concomitant]
     Indication: DEPRESSION
     Route: 048
     Dates: start: 20131223
  6. DIPIPERON [Concomitant]
     Indication: AGITATION
     Route: 048
     Dates: start: 20140117
  7. INEXIUM [Concomitant]
     Indication: GASTROOESOPHAGEAL REFLUX DISEASE
     Route: 048
     Dates: start: 20140203
  8. MOVICOL [Concomitant]
     Indication: CONSTIPATION
     Route: 065
     Dates: start: 20130326

REACTIONS (2)
  - Psychosexual disorder [Not Recovered/Not Resolved]
  - Off label use [Not Recovered/Not Resolved]
